FAERS Safety Report 7532525-4 (Version None)
Quarter: 2011Q2

REPORT INFORMATION
  Report Type: 
  Country: None (occurrence: None)
  Receive Date: 20110608
  Receipt Date: 20110526
  Transmission Date: 20111010
  Serious: Yes (Hospitalization)
  Sender: FDA-Public Use
  Company Number: PHHY2011FR45713

PATIENT
  Age: 83 Year
  Sex: Male

DRUGS (3)
  1. NAVELBINE [Concomitant]
     Dosage: 250 MG
     Route: 048
  2. ZOMETA [Suspect]
     Indication: PROSTATE CANCER
     Dosage: 4 MG/ 5 ML
     Route: 042
     Dates: start: 20100101, end: 20110201
  3. ESTRACYT [Concomitant]
     Dosage: 140 MG
     Route: 048

REACTIONS (4)
  - CONFUSIONAL STATE [None]
  - DEMENTIA [None]
  - DEPRESSION [None]
  - DISORIENTATION [None]
